FAERS Safety Report 12622428 (Version 1)
Quarter: 2016Q3

REPORT INFORMATION
  Report Type: Other
  Country: AU (occurrence: AU)
  Receive Date: 20160804
  Receipt Date: 20160804
  Transmission Date: 20161109
  Serious: Yes (Hospitalization)
  Sender: FDA-Public Use
  Company Number: AU-B. BRAUN MEDICAL INC.-1055853

PATIENT
  Age: 64 Year
  Sex: Male

DRUGS (5)
  1. PRASUGREL [Concomitant]
     Active Substance: PRASUGREL
  2. ABCIXIMAB [Concomitant]
     Active Substance: ABCIXIMAB
     Route: 042
  3. ASPIRIN. [Concomitant]
     Active Substance: ASPIRIN
  4. ABCIXIMAB [Concomitant]
     Active Substance: ABCIXIMAB
     Route: 042
  5. HEPARIN SODIUM AND DEXTROSE [Suspect]
     Active Substance: HEPARIN SODIUM
     Route: 040

REACTIONS (2)
  - Spinal cord haematoma [None]
  - Paraplegia [None]
